FAERS Safety Report 6424667-1 (Version None)
Quarter: 2009Q4

REPORT INFORMATION
  Report Type: 
  Country: None (occurrence: None)
  Receive Date: 20091103
  Receipt Date: 20091023
  Transmission Date: 20100525
  Serious: Yes (Death, Life-Threatening)
  Sender: FDA-Public Use
  Company Number: US-NOVOPROD-293196

PATIENT
  Age: 69 Year
  Sex: Male

DRUGS (1)
  1. NOVOSEVEN RT [Suspect]
     Indication: HAEMORRHAGE
     Dosage: UNK
     Dates: start: 20091012, end: 20091012

REACTIONS (3)
  - AORTIC THROMBOSIS [None]
  - ATRIAL THROMBOSIS [None]
  - OPERATIVE HAEMORRHAGE [None]
